FAERS Safety Report 7272713-8 (Version None)
Quarter: 2011Q1

REPORT INFORMATION
  Report Type: 
  Country: None (occurrence: None)
  Receive Date: 20110203
  Receipt Date: 20110201
  Transmission Date: 20110831
  Serious: Yes (Other)
  Sender: FDA-Public Use
  Company Number: US-PFIZER INC-2011023435

PATIENT
  Sex: Female
  Weight: 72.562 kg

DRUGS (6)
  1. RAMIPRIL [Concomitant]
     Dosage: 10 MG, 2X/DAY
  2. LISINOPRIL [Concomitant]
     Dosage: UNK
  3. EFFEXOR XR [Suspect]
     Indication: DEPRESSION
     Dosage: 300 MG, UNK
     Route: 048
     Dates: start: 20101207
  4. PROTONIX [Concomitant]
     Dosage: 40 MG, UNK
  5. GEODON [Suspect]
     Indication: BIPOLAR DISORDER
     Dosage: 60 MG, UNK
     Route: 048
     Dates: start: 20101201, end: 20110131
  6. ATENOLOL [Concomitant]
     Dosage: 50 MG, UNK

REACTIONS (1)
  - ARRHYTHMIA [None]
